FAERS Safety Report 13260721 (Version 1)
Quarter: 2017Q1

REPORT INFORMATION
  Report Type: Report from Study
  Country: DE (occurrence: DE)
  Receive Date: 20170222
  Receipt Date: 20170222
  Transmission Date: 20170428
  Serious: Yes (Hospitalization)
  Sender: FDA-Public Use
  Company Number: DE-BIOGEN-2017BI00360843

PATIENT
  Age: 39 Year
  Sex: Female
  Weight: 95 kg

DRUGS (3)
  1. TYSABRI [Suspect]
     Active Substance: NATALIZUMAB
     Indication: MULTIPLE SCLEROSIS
     Dosage: INFUSED OVER ONE HOUR
     Route: 042
     Dates: start: 20090301
  2. CITALOPRAM [Concomitant]
     Active Substance: CITALOPRAM HYDROBROMIDE
     Indication: DEPRESSION
     Route: 065
     Dates: start: 200801
  3. SULPIRID [Concomitant]
     Active Substance: SULPIRIDE
     Indication: DIZZINESS
     Route: 065
     Dates: start: 200901

REACTIONS (1)
  - Goitre [Recovered/Resolved]
